FAERS Safety Report 22226983 (Version 9)
Quarter: 2023Q4

REPORT INFORMATION
  Report Type: Report from Study
  Country: CN (occurrence: None)
  Receive Date: 20230419
  Receipt Date: 20231010
  Transmission Date: 20240109
  Serious: Yes (Hospitalization)
  Sender: FDA-Public Use
  Company Number: CN-ROCHE-3330318

PATIENT
  Age: 58 Year
  Sex: Male
  Weight: 70 kg

DRUGS (12)
  1. TIRAGOLUMAB [Suspect]
     Active Substance: TIRAGOLUMAB
     Indication: Small cell lung cancer extensive stage
     Dosage: ON 22/MAR/2023, HE RECEIVED LAST DOSE OF BLINDED TIRAGOLUMAB PRIOR AE/SAE
     Route: 042
     Dates: start: 20210506
  2. ATEZOLIZUMAB [Suspect]
     Active Substance: ATEZOLIZUMAB
     Indication: Small cell lung cancer extensive stage
     Dosage: ON 22/MAR/2023, DOSE LAST STUDY DRUG ADMIN PRIOR AE/SAE 1200 MG
     Route: 041
     Dates: start: 20210506
  3. CARBOPLATIN [Suspect]
     Active Substance: CARBOPLATIN
     Indication: Small cell lung cancer extensive stage
     Route: 042
     Dates: start: 20210506
  4. CARBOPLATIN [Suspect]
     Active Substance: CARBOPLATIN
     Dosage: ON 08/JUL/2021, HE RECEIVED MOST RECENT DOSE (490 NG) OF CARBOPLATIN PRIOR TO AE/SAE
     Route: 042
  5. ETOPOSIDE [Suspect]
     Active Substance: ETOPOSIDE
     Indication: Small cell lung cancer extensive stage
     Dosage: ON DAY 1, 2 AND 3 OF EACH 21-DAY CYCLE FOR 4 CYCLES
     Route: 042
     Dates: start: 20210506
  6. ETOPOSIDE [Suspect]
     Active Substance: ETOPOSIDE
     Dosage: ON 08/JUL/2021, HE RECEIVED MOST RECENT DOSE OF ETOPOSIDE PRIOR TO AE/SAE 120 MG
     Route: 042
  7. BACTROBAN [Concomitant]
     Active Substance: MUPIROCIN\MUPIROCIN CALCIUM
     Indication: Rash
     Route: 061
     Dates: start: 20220526
  8. PEVISONE [Concomitant]
     Indication: Rash
     Route: 061
     Dates: start: 20220526
  9. SODIUM CHLORIDE [Concomitant]
     Active Substance: SODIUM CHLORIDE
     Route: 042
     Dates: start: 20230411, end: 20230412
  10. YUNNAN BAIYAO [Concomitant]
     Dosage: 1 CAPSULE
     Dates: start: 20210417
  11. OMEPRAZOLE [Concomitant]
     Active Substance: OMEPRAZOLE
     Dosage: 80 MG IVGTT
     Route: 042
     Dates: start: 20230411, end: 20230411
  12. OMEPRAZOLE [Concomitant]
     Active Substance: OMEPRAZOLE
     Route: 042
     Dates: start: 20230411, end: 20230411

REACTIONS (2)
  - Hyperglycaemia [Not Recovered/Not Resolved]
  - Ketoacidosis [Not Recovered/Not Resolved]

NARRATIVE: CASE EVENT DATE: 20230411
